FAERS Safety Report 9801004 (Version 4)
Quarter: 2014Q1

REPORT INFORMATION
  Report Type: Spontaneous
  Country: US (occurrence: US)
  Receive Date: 20140107
  Receipt Date: 20140307
  Transmission Date: 20141002
  Serious: Yes (Hospitalization, Disabling, Other)
  Sender: FDA-Public Use
  Company Number: US-CELGENEUS-163-21880-14010351

PATIENT
  Age: 44 Year
  Sex: Female
  Weight: 71.17 kg

DRUGS (3)
  1. REVLIMID [Suspect]
     Indication: PLASMA CELL MYELOMA
     Dosage: 25 MILLIGRAM
     Route: 048
     Dates: start: 20120828, end: 20121126
  2. REVLIMID [Suspect]
     Dosage: 10 - 15MG
     Route: 048
     Dates: start: 20130622, end: 20131113
  3. REVLIMID [Suspect]
     Dosage: 5 MILLIGRAM
     Route: 048
     Dates: start: 20131113

REACTIONS (3)
  - Plasma cell myeloma [Recovered/Resolved]
  - Neutropenia [Unknown]
  - Influenza [Unknown]
